FAERS Safety Report 15756030 (Version 1)
Quarter: 2018Q4

REPORT INFORMATION
  Report Type: Spontaneous
  Country: SG (occurrence: SG)
  Receive Date: 20181224
  Receipt Date: 20181224
  Transmission Date: 20190205
  Serious: Yes (Hospitalization, Other)
  Sender: FDA-Public Use
  Company Number: PHHY2018SG190112

PATIENT
  Age: 24 Year
  Sex: Female

DRUGS (1)
  1. DICLOFENAC [Suspect]
     Active Substance: DICLOFENAC
     Indication: PRODUCT USED FOR UNKNOWN INDICATION
     Dosage: UNK
     Route: 048

REACTIONS (4)
  - Tonsillar hypertrophy [Unknown]
  - Enlarged uvula [Unknown]
  - Orbital oedema [Unknown]
  - Palatal oedema [Unknown]

NARRATIVE: CASE EVENT DATE: 20181113
